FAERS Safety Report 8028424-4 (Version None)
Quarter: 2012Q1

REPORT INFORMATION
  Report Type: 
  Country: None (occurrence: None)
  Receive Date: 20120106
  Receipt Date: 20120104
  Transmission Date: 20120608
  Serious: Yes (Death, Hospitalization)
  Sender: FDA-Public Use
  Company Number: DE-ABBOTT-10P-062-0619416-00

PATIENT
  Sex: Female
  Weight: 80 kg

DRUGS (3)
  1. NOVALGIN [Concomitant]
     Indication: RHEUMATOID ARTHRITIS
     Route: 048
  2. HUMIRA [Suspect]
     Indication: RHEUMATOID ARTHRITIS
     Route: 058
     Dates: start: 20080228, end: 20090901
  3. HUMIRA [Suspect]
     Route: 058
     Dates: start: 20091201, end: 20111226

REACTIONS (7)
  - PRURITUS [None]
  - ORGAN FAILURE [None]
  - OEDEMA PERIPHERAL [None]
  - CARDIAC FAILURE [None]
  - SEPSIS [None]
  - CYSTITIS [None]
  - RENAL FAILURE ACUTE [None]
